FAERS Safety Report 14063827 (Version 2)
Quarter: 2018Q1

REPORT INFORMATION
  Report Type: Spontaneous
  Country: AU (occurrence: AU)
  Receive Date: 20171009
  Receipt Date: 20180307
  Transmission Date: 20180508
  Serious: Yes (Death, Other)
  Sender: FDA-Public Use
  Company Number: PHHY2017AU147744

PATIENT
  Age: 70 Year
  Sex: Female

DRUGS (15)
  1. IDARUBICIN [Suspect]
     Active Substance: IDARUBICIN
     Dosage: 12 MG/M2, QD (DAY 1 TO 2)
     Route: 042
     Dates: start: 20150810
  2. AMSACRINE [Suspect]
     Active Substance: AMSACRINE
     Indication: ACUTE MYELOID LEUKAEMIA
     Dosage: 100 MG/M2, QD (DAY 1 TO 3)
     Route: 042
     Dates: start: 20160512
  3. FLUDARABINE [Suspect]
     Active Substance: FLUDARABINE PHOSPHATE
     Indication: ACUTE MYELOID LEUKAEMIA
     Dosage: 30 MG/M2, QD (DAY 1 TO 5)
     Route: 042
     Dates: start: 20160512
  4. POSACONAZOLE [Suspect]
     Active Substance: POSACONAZOLE
     Indication: PRODUCT USED FOR UNKNOWN INDICATION
     Dosage: UNK
     Route: 065
     Dates: start: 20150624
  5. POSACONAZOLE [Suspect]
     Active Substance: POSACONAZOLE
     Dosage: UNK
     Route: 065
     Dates: start: 20150810
  6. CYTARABINE. [Suspect]
     Active Substance: CYTARABINE
     Dosage: 1000 MG/M2, BID (DAY 1,3,5)
     Route: 042
     Dates: start: 20150923
  7. CYTARABINE. [Suspect]
     Active Substance: CYTARABINE
     Dosage: 2000 MG/M2, QD (DAY 1 TO 5)
     Route: 042
     Dates: start: 20160512
  8. POSACONAZOLE [Suspect]
     Active Substance: POSACONAZOLE
     Dosage: 300 MG, QD
     Route: 065
     Dates: start: 20160414
  9. POSACONAZOLE [Suspect]
     Active Substance: POSACONAZOLE
     Dosage: UNK
     Route: 065
     Dates: start: 20150923
  10. IDARUBICIN [Suspect]
     Active Substance: IDARUBICIN
     Dosage: 12 MG/M2, QD (DAY 1 TO 2)
     Route: 042
     Dates: start: 20150923
  11. CYTARABINE. [Suspect]
     Active Substance: CYTARABINE
     Indication: ACUTE MYELOID LEUKAEMIA
     Dosage: 100 MG/M2, QD (DAY 1 TO 7)
     Route: 041
     Dates: start: 20150624
  12. G-CSF [Suspect]
     Active Substance: GRANULOCYTE COLONY-STIMULATING FACTOR NOS
     Indication: ACUTE MYELOID LEUKAEMIA
     Dosage: 300 UG, QD (DAY 0 TO 6)
     Route: 058
     Dates: start: 20160512
  13. CYTARABINE. [Suspect]
     Active Substance: CYTARABINE
     Dosage: 1000 MG/M2, BID (DAY 1,3,5)
     Route: 042
     Dates: start: 20150810
  14. IDARUBICIN [Suspect]
     Active Substance: IDARUBICIN
     Indication: ACUTE MYELOID LEUKAEMIA
     Dosage: 12 MG/M2, QD (DAY 1 TO 3)
     Route: 042
     Dates: start: 20150624
  15. CYTARABINE. [Suspect]
     Active Substance: CYTARABINE
     Dosage: 1000 MG/M2, QD (D1 TO 5)
     Route: 042
     Dates: start: 20160414

REACTIONS (3)
  - Death [Fatal]
  - Acute myeloid leukaemia recurrent [Unknown]
  - Drug ineffective [Unknown]

NARRATIVE: CASE EVENT DATE: 20160824
